FAERS Safety Report 19396218 (Version 3)
Quarter: 2021Q3

REPORT INFORMATION
  Report Type: Report from Study
  Country: JP (occurrence: JP)
  Receive Date: 20210609
  Receipt Date: 20210709
  Transmission Date: 20211014
  Serious: Yes (Hospitalization)
  Sender: FDA-Public Use
  Company Number: JP-EISAI MEDICAL RESEARCH-EC-2021-093892

PATIENT
  Age: 78 Year
  Sex: Male
  Weight: 52 kg

DRUGS (6)
  1. LOXOPROFEN [Concomitant]
     Active Substance: LOXOPROFEN
     Indication: PYREXIA
     Route: 065
     Dates: start: 20210509
  2. TEPRENONE [Concomitant]
     Active Substance: TEPRENONE
     Indication: GASTRITIS PROPHYLAXIS
     Route: 065
     Dates: start: 20210509
  3. NIVOLUMAB(GENETICAL RECOMBINATION) [Suspect]
     Active Substance: NIVOLUMAB
     Indication: OESOPHAGEAL CARCINOMA
     Route: 042
     Dates: start: 20210524
  4. MAGNESIUM OXIDE. [Concomitant]
     Active Substance: MAGNESIUM OXIDE
     Indication: FAECAL MANAGEMENT
     Route: 065
     Dates: start: 201811, end: 20210525
  5. ERIBULIN [Suspect]
     Active Substance: ERIBULIN
     Indication: OESOPHAGEAL CARCINOMA
     Route: 042
     Dates: start: 20210524
  6. TAKECAB [Concomitant]
     Active Substance: VONOPRAZAN FUMARATE
     Indication: HYPERCHLORHYDRIA
     Route: 065
     Dates: start: 20190312, end: 20190603

REACTIONS (4)
  - Leukopenia [Recovered/Resolved]
  - Malaise [Recovered/Resolved]
  - Febrile neutropenia [Recovered/Resolved]
  - Stomatitis [Recovering/Resolving]

NARRATIVE: CASE EVENT DATE: 20210526
